FAERS Safety Report 10599355 (Version 2)
Quarter: 2014Q4

REPORT INFORMATION
  Report Type: Spontaneous
  Country: GB (occurrence: GB)
  Receive Date: 20141121
  Receipt Date: 20141202
  Transmission Date: 20150529
  Serious: Yes (Other)
  Sender: FDA-Public Use
  Company Number: GB-BAYER-2014-169686

PATIENT
  Age: 7 Week
  Sex: Female

DRUGS (1)
  1. CANESTEN CREAM [Suspect]
     Active Substance: CLOTRIMAZOLE
     Indication: CANDIDA INFECTION
     Dosage: UNK
     Route: 061
     Dates: start: 20141021, end: 20141025

REACTIONS (5)
  - Skin haemorrhage [Recovered/Resolved]
  - Skin swelling [Recovered/Resolved]
  - Pain [Recovered/Resolved]
  - Genital rash [Recovered/Resolved]
  - Erythema [Recovered/Resolved]

NARRATIVE: CASE EVENT DATE: 20141022
